FAERS Safety Report 7633578-5 (Version None)
Quarter: 2011Q3

REPORT INFORMATION
  Report Type: 
  Country: None (occurrence: None)
  Receive Date: 20110725
  Receipt Date: 20110705
  Transmission Date: 20111222
  Serious: Yes (Hospitalization)
  Sender: FDA-Public Use
  Company Number: US-GLAXOSMITHKLINE-A0873054A

PATIENT
  Age: 42 Year
  Sex: Female
  Weight: 106.8 kg

DRUGS (11)
  1. WELLBUTRIN [Concomitant]
  2. AVANDIA [Suspect]
     Indication: DIABETES MELLITUS
     Dosage: 4MG TWICE PER DAY
     Route: 048
     Dates: start: 20010101, end: 20061201
  3. KLONOPIN [Concomitant]
  4. ALBUTEROL SULFATE AUTOHALER [Concomitant]
  5. ATROVENT [Concomitant]
  6. GLYBURIDE [Concomitant]
  7. ADVAIR DISKUS 100/50 [Concomitant]
  8. CELEXA [Concomitant]
  9. ZOCOR [Concomitant]
  10. GLUCOPHAGE [Concomitant]
  11. TOPROL-XL [Concomitant]

REACTIONS (4)
  - TRANSIENT ISCHAEMIC ATTACK [None]
  - CEREBROVASCULAR ACCIDENT [None]
  - CARDIAC FAILURE CONGESTIVE [None]
  - SUPRAVENTRICULAR TACHYCARDIA [None]
